FAERS Safety Report 4317667-9 (Version None)
Quarter: 2004Q1

REPORT INFORMATION
  Report Type: 
  Country: None (occurrence: None)
  Receive Date: 20040315
  Receipt Date: 20040217
  Transmission Date: 20041129
  Serious: Yes (Other)
  Sender: FDA-Public Use
  Company Number: WAES 0402GBR00173

PATIENT
  Age: 6 Year
  Sex: Male
  Weight: 20 kg

DRUGS (5)
  1. ALBUTEROL [Concomitant]
  2. FLUTICASONE PROPIONATE [Suspect]
     Indication: ASTHMA
     Route: 055
     Dates: start: 20040206, end: 20040209
  3. FLUTICASONE PROPIONATE [Suspect]
     Route: 055
     Dates: start: 20040228
  4. SINGULAIR [Suspect]
     Indication: ASTHMA
     Route: 048
     Dates: start: 20040206, end: 20040209
  5. SINGULAIR [Suspect]
     Route: 048
     Dates: start: 20040216, end: 20040219

REACTIONS (6)
  - ARTHRALGIA [None]
  - HEADACHE [None]
  - HYPERHIDROSIS [None]
  - NECK PAIN [None]
  - PAIN IN EXTREMITY [None]
  - VOMITING [None]
